FAERS Safety Report 7069251-4 (Version None)
Quarter: 2010Q4

REPORT INFORMATION
  Report Type: 
  Country: None (occurrence: None)
  Receive Date: 20101028
  Receipt Date: 20101020
  Transmission Date: 20110411
  Serious: Yes (Death)
  Sender: FDA-Public Use
  Company Number: US-PURDUE-USA-2010-0044327

PATIENT
  Sex: Male

DRUGS (4)
  1. OXYCONTIN [Suspect]
     Indication: BACK PAIN
     Dosage: 240 MG, DAILY
     Route: 048
     Dates: start: 20090604
  2. OXYCONTIN [Suspect]
     Indication: POLYNEUROPATHY
  3. OXYMORPHONE [Suspect]
     Indication: PRODUCT USED FOR UNKNOWN INDICATION
  4. DIAZEPAM [Suspect]
     Indication: PRODUCT USED FOR UNKNOWN INDICATION

REACTIONS (1)
  - MULTIPLE DRUG OVERDOSE ACCIDENTAL [None]
